FAERS Safety Report 21843206 (Version 3)
Quarter: 2024Q2

REPORT INFORMATION
  Report Type: Spontaneous
  Country: US (occurrence: US)
  Receive Date: 20230110
  Receipt Date: 20240419
  Transmission Date: 20240716
  Serious: Yes (Hospitalization)
  Sender: FDA-Public Use
  Company Number: US-TEVA-2023-US-2843640

PATIENT
  Age: 51 Year
  Sex: Female
  Weight: 74.7 kg

DRUGS (7)
  1. BUSPIRONE [Suspect]
     Active Substance: BUSPIRONE HYDROCHLORIDE
     Indication: Anxiety
     Route: 048
     Dates: start: 2022
  2. MICARDIS [Concomitant]
     Active Substance: TELMISARTAN
     Indication: Hypertension
     Dosage: DOSAGE TEXT: ONGOING
     Dates: start: 202202
  3. SULFASALAZINE [Concomitant]
     Active Substance: SULFASALAZINE
     Indication: Rheumatoid arthritis
     Dosage: DOSAGE TEXT: ONGOING
     Dates: start: 2021
  4. INFLUENZA VIRUS VACCINE [Suspect]
     Active Substance: INFLUENZA VIRUS VACCINE
     Indication: Immunisation
     Route: 030
     Dates: start: 20221108, end: 20221108
  5. VRAYLAR [Concomitant]
     Active Substance: CARIPRAZINE
     Indication: Bipolar disorder
     Dosage: DOSAGE TEXT: ONGOING
     Dates: start: 202203
  6. PANTOPRAZOLE [Concomitant]
     Active Substance: PANTOPRAZOLE
     Indication: Gastrooesophageal reflux disease
     Dosage: DOSAGE TEXT: ONGOING
     Dates: start: 2018
  7. ROSUVASTATIN [Concomitant]
     Active Substance: ROSUVASTATIN
     Indication: Hypercholesterolaemia
     Dosage: DOSAGE TEXT: ONGOING
     Dates: start: 2021

REACTIONS (4)
  - Migraine [Recovered/Resolved]
  - Confusional state [Unknown]
  - Dizziness [Unknown]
  - Headache [Recovered/Resolved]

NARRATIVE: CASE EVENT DATE: 20221203
